FAERS Safety Report 12564602 (Version 2)
Quarter: 2017Q2

REPORT INFORMATION
  Report Type: Spontaneous
  Country: US (occurrence: US)
  Receive Date: 20160718
  Receipt Date: 20170627
  Transmission Date: 20170830
  Serious: No
  Sender: FDA-Public Use
  Company Number: US-ASTRAZENECA-2016SE74052

PATIENT
  Sex: Female

DRUGS (4)
  1. TUDORZA PRESSAIR [Suspect]
     Active Substance: ACLIDINIUM BROMIDE
     Indication: ASTHMA
     Dosage: 400 MCG 60 METERED DOSE INHALER 1 PUFF TWICE A DAY
     Route: 055
     Dates: start: 201601
  2. MORPHINE [Concomitant]
     Active Substance: MORPHINE
  3. TUDORZA PRESSAIR [Suspect]
     Active Substance: ACLIDINIUM BROMIDE
     Indication: CHRONIC OBSTRUCTIVE PULMONARY DISEASE
     Dosage: 400 MCG 60 METERED DOSE INHALER 1 PUFF TWICE A DAY
     Route: 055
     Dates: start: 201601
  4. SYMBICORT [Suspect]
     Active Substance: BUDESONIDE\FORMOTEROL FUMARATE DIHYDRATE
     Route: 055

REACTIONS (6)
  - Medication error [Unknown]
  - Off label use [Unknown]
  - Product quality issue [Unknown]
  - Product use in unapproved indication [Unknown]
  - Chronic obstructive pulmonary disease [Unknown]
  - Asthma [Unknown]
